FAERS Safety Report 15793949 (Version 1)
Quarter: 2019Q1

REPORT INFORMATION
  Report Type: Spontaneous
  Country: CA (occurrence: CA)
  Receive Date: 20190107
  Receipt Date: 20190107
  Transmission Date: 20190417
  Serious: Yes (Life-Threatening, Hospitalization, Other)
  Sender: FDA-Public Use
  Company Number: CA-PFIZER INC-2019005618

PATIENT
  Age: 40 Year
  Sex: Female
  Weight: 61 kg

DRUGS (1)
  1. EPIRUBICIN HCL [Suspect]
     Active Substance: EPIRUBICIN HYDROCHLORIDE
     Indication: BREAST CANCER
     Dosage: 167 MG, EVERY 3 WEEKS
     Route: 042

REACTIONS (6)
  - Panic reaction [Unknown]
  - Back pain [Unknown]
  - Chills [Unknown]
  - Palpitations [Unknown]
  - Pharyngeal oedema [Unknown]
  - Anxiety [Unknown]
